FAERS Safety Report 5679929-2 (Version None)
Quarter: 2008Q1

REPORT INFORMATION
  Report Type: 
  Country: None (occurrence: None)
  Receive Date: 20080324
  Receipt Date: 20080313
  Transmission Date: 20080703
  Serious: Yes (Death)
  Sender: FDA-Public Use
  Company Number: 2008P1000045

PATIENT

DRUGS (2)
  1. BUSULFAN (BUSULFAN) [Suspect]
     Indication: STEM CELL TRANSPLANT
     Dosage: 3.2 MG/KG; X1; IV
     Route: 042
  2. FLUDARABINE [Concomitant]

REACTIONS (2)
  - GRAFT VERSUS HOST DISEASE [None]
  - LYMPHOPROLIFERATIVE DISORDER [None]
